FAERS Safety Report 9643633 (Version 1)
Quarter: 2013Q4

REPORT INFORMATION
  Report Type: Spontaneous
  Country: US (occurrence: US)
  Receive Date: 20131024
  Receipt Date: 20131024
  Transmission Date: 20140711
  Serious: Yes (Hospitalization)
  Sender: FDA-Public Use
  Company Number: US-TEVA-439982USA

PATIENT
  Sex: 0

DRUGS (2)
  1. GLIBENCLAMIDE [Suspect]
     Dosage: 5 MILLIGRAM DAILY;
  2. GLIBENCLAMIDE [Suspect]

REACTIONS (3)
  - Weight abnormal [Unknown]
  - Blood glucose decreased [Unknown]
  - Dizziness [Unknown]
